FAERS Safety Report 7156652-9 (Version None)
Quarter: 2010Q4

REPORT INFORMATION
  Report Type: 
  Country: None (occurrence: None)
  Receive Date: 20101214
  Receipt Date: 20101021
  Transmission Date: 20110411
  Serious: No
  Sender: FDA-Public Use
  Company Number: US-ASTRAZENECA-2005UW02394

PATIENT
  Age: 62 Year
  Sex: Female
  Weight: 96.6 kg

DRUGS (10)
  1. CRESTOR [Suspect]
     Indication: HYPERCHOLESTEROLAEMIA
     Route: 048
     Dates: start: 20050201
  2. CRESTOR [Suspect]
     Route: 048
  3. SEREVENT [Concomitant]
  4. FLOVENT [Concomitant]
  5. NEXIUM [Concomitant]
  6. FUROSEMIDE [Concomitant]
  7. ASPIRIN [Concomitant]
  8. DIOVAN [Concomitant]
  9. NIASPAN [Concomitant]
  10. LOVAZA [Concomitant]

REACTIONS (7)
  - ALOPECIA [None]
  - ARTHRALGIA [None]
  - DIZZINESS [None]
  - MYALGIA [None]
  - ONYCHOCLASIS [None]
  - PAIN [None]
  - VISION BLURRED [None]
